FAERS Safety Report 22607165 (Version 4)
Quarter: 2024Q1

REPORT INFORMATION
  Report Type: Spontaneous
  Country: JP (occurrence: JP)
  Receive Date: 20230615
  Receipt Date: 20240124
  Transmission Date: 20240410
  Serious: Yes (Life-Threatening, Hospitalization, Other)
  Sender: FDA-Public Use
  Company Number: JP-AMGEN-JPNSP2023092808

PATIENT
  Age: 82 Year
  Sex: Female
  Weight: 43 kg

DRUGS (10)
  1. EVENITY [Suspect]
     Active Substance: ROMOSOZUMAB-AQQG
     Indication: Osteoporosis
     Dosage: 210 MILLIGRAM, QMO
     Route: 058
     Dates: start: 20230210, end: 20230414
  2. AMLODIPINE BESYLATE\IRBESARTAN [Concomitant]
     Active Substance: AMLODIPINE BESYLATE\IRBESARTAN
     Dosage: UNK
     Route: 065
  3. MAGNESIUM OXIDE [Concomitant]
     Active Substance: MAGNESIUM OXIDE
     Indication: Constipation
     Dosage: 330 MILLIGRAM, TID
  4. LANSOPRAZOLE [Concomitant]
     Active Substance: LANSOPRAZOLE
     Indication: Gastrooesophageal reflux disease
     Dosage: 30 MILLIGRAM, QD
     Dates: end: 20230519
  5. ALENDRONATE [Concomitant]
     Active Substance: ALENDRONATE SODIUM
     Indication: Osteoporosis
     Dosage: 35 MILLIGRAM, QWK
     Dates: start: 20230519
  6. CANDESARTAN [Concomitant]
     Active Substance: CANDESARTAN
     Indication: Hypertension
     Dosage: 4 MILLIGRAM, QD
     Dates: start: 20230520, end: 20230525
  7. SPIRONOLACTONE [Concomitant]
     Active Substance: SPIRONOLACTONE
     Indication: Cardiac failure
     Dosage: 25 MILLIGRAM, QD
     Dates: start: 20230520, end: 20230525
  8. JARDIANCE [Concomitant]
     Active Substance: EMPAGLIFLOZIN
     Indication: Diabetes mellitus
     Dosage: 10 MILLIGRAM, QD
     Dates: start: 20230520, end: 20230525
  9. FUROSEMIDE [Concomitant]
     Active Substance: FUROSEMIDE
     Indication: Cardiac failure
     Dosage: 20 MILLIGRAM, QD
     Dates: start: 20230519, end: 20230522
  10. FUROSEMIDE [Concomitant]
     Active Substance: FUROSEMIDE
     Dosage: 10 MILLIGRAM, QD
     Dates: start: 20230523, end: 20230525

REACTIONS (2)
  - Cardiovascular disorder [Unknown]
  - Endocarditis [Not Recovered/Not Resolved]

NARRATIVE: CASE EVENT DATE: 20230519
